FAERS Safety Report 8262215-4 (Version None)
Quarter: 2012Q2

REPORT INFORMATION
  Report Type: 
  Country: None (occurrence: None)
  Receive Date: 20120402
  Receipt Date: 20120319
  Transmission Date: 20120825
  Serious: Yes (Other)
  Sender: FDA-Public Use
  Company Number: US-2011-10589

PATIENT
  Age: 39 Year
  Sex: Male

DRUGS (3)
  1. MONOPRIL [Concomitant]
  2. FOSINOPRIL (FOSINOPRIL SODIUM) [Concomitant]
  3. OPC-41061 (TOLVAPTAN) TABLET, 15MG MILLIGRAM(S) [Suspect]
     Indication: CONGENITAL CYSTIC KIDNEY DISEASE
     Dosage: 60 MG MILLIGRAM(S), DAILY DOSE, ORAL
     Route: 048
     Dates: start: 20110614, end: 20110811

REACTIONS (7)
  - EXTRASYSTOLES [None]
  - INSOMNIA [None]
  - CRYING [None]
  - ANXIETY [None]
  - SINUS TACHYCARDIA [None]
  - REFUSAL OF TREATMENT BY PATIENT [None]
  - DEPRESSED MOOD [None]
